FAERS Safety Report 10220331 (Version 11)
Quarter: 2018Q3

REPORT INFORMATION
  Report Type: Report from Study
  Country: CA (occurrence: CA)
  Receive Date: 20140606
  Receipt Date: 20180724
  Transmission Date: 20181010
  Serious: Yes (Other)
  Sender: FDA-Public Use
  Company Number: CA-ROCHE-1273649

PATIENT
  Age: 73 Year
  Sex: Female
  Weight: 70.37 kg

DRUGS (16)
  1. PRIMROSE [Concomitant]
  2. ARAVA [Concomitant]
     Active Substance: LEFLUNOMIDE
  3. CRANBERRY. [Concomitant]
     Active Substance: CRANBERRY
     Route: 065
  4. FOLIC ACID. [Concomitant]
     Active Substance: FOLIC ACID
  5. DIPHENHYDRAMINE HCL [Concomitant]
     Active Substance: DIPHENHYDRAMINE HYDROCHLORIDE
     Route: 048
     Dates: start: 20130909
  6. IRBESARTAN. [Concomitant]
     Active Substance: IRBESARTAN
  7. OMEGA 3 [Concomitant]
     Active Substance: OMEGA-3 FATTY ACIDS
  8. RANITIDINE. [Concomitant]
     Active Substance: RANITIDINE
  9. ACETAMINOPHEN. [Concomitant]
     Active Substance: ACETAMINOPHEN
     Route: 048
     Dates: start: 20130909
  10. ALENDRONATE [Concomitant]
     Active Substance: ALENDRONATE SODIUM
  11. CELEBREX [Concomitant]
     Active Substance: CELECOXIB
  12. RAMIPRIL. [Concomitant]
     Active Substance: RAMIPRIL
  13. METHYLPREDNISOLONE. [Concomitant]
     Active Substance: METHYLPREDNISOLONE
     Route: 042
     Dates: start: 20130909
  14. VITAMIN E [Concomitant]
     Active Substance: .ALPHA.-TOCOPHEROL
  15. RITUXAN [Suspect]
     Active Substance: RITUXIMAB
     Indication: RHEUMATOID ARTHRITIS
     Dosage: FREQUENCY : DAY 1 AND 15.?LAST RITUXIMAB DOSE WAS ON 04/JUL/2017
     Route: 042
     Dates: start: 20130909
  16. TYLENOL [Concomitant]
     Active Substance: ACETAMINOPHEN
     Indication: ARTHRITIS

REACTIONS (17)
  - Psoriasis [Not Recovered/Not Resolved]
  - Musculoskeletal pain [Unknown]
  - Influenza [Not Recovered/Not Resolved]
  - Lung infection [Not Recovered/Not Resolved]
  - Nitrite urine present [Not Recovered/Not Resolved]
  - Infusion related reaction [Unknown]
  - Pulmonary fibrosis [Unknown]
  - Hepatitis B virus test positive [Not Recovered/Not Resolved]
  - Pneumonia [Not Recovered/Not Resolved]
  - White blood cells urine positive [Not Recovered/Not Resolved]
  - Drug ineffective [Unknown]
  - Osteoporosis [Not Recovered/Not Resolved]
  - Bronchitis [Not Recovered/Not Resolved]
  - Tendon disorder [Not Recovered/Not Resolved]
  - Peripheral swelling [Unknown]
  - Drug effect decreased [Unknown]
  - Pain in extremity [Not Recovered/Not Resolved]

NARRATIVE: CASE EVENT DATE: 20130909
